FAERS Safety Report 9723468 (Version 1)
Quarter: 2013Q4

REPORT INFORMATION
  Report Type: Spontaneous
  Country: DE (occurrence: DE)
  Receive Date: 20131202
  Receipt Date: 20131202
  Transmission Date: 20140711
  Serious: Yes (Hospitalization)
  Sender: FDA-Public Use
  Company Number: DE-BAYER-2013-143316

PATIENT
  Age: 43 Year
  Sex: Female
  Weight: 69 kg

DRUGS (1)
  1. AVALOX [Suspect]
     Indication: UPPER RESPIRATORY TRACT INFECTION
     Dosage: 400 MG, UNK
     Dates: start: 20131113, end: 20131113

REACTIONS (8)
  - Anaphylactic shock [Recovering/Resolving]
  - Pruritus [Recovering/Resolving]
  - Urticaria [Recovering/Resolving]
  - Tachycardia [Recovering/Resolving]
  - Dizziness [Recovering/Resolving]
  - Paraesthesia [Recovering/Resolving]
  - Circulatory collapse [Recovering/Resolving]
  - Fear of death [Recovering/Resolving]
